FAERS Safety Report 23100047 (Version 1)
Quarter: 2023Q4

REPORT INFORMATION
  Report Type: Spontaneous
  Country: US (occurrence: US)
  Receive Date: 20231024
  Receipt Date: 20231024
  Transmission Date: 20240110
  Serious: No
  Sender: FDA-Public Use
  Company Number: US-PFIZER INC-PV202300174717

PATIENT
  Age: 65 Year
  Sex: Male

DRUGS (2)
  1. XELJANZ [Interacting]
     Active Substance: TOFACITINIB CITRATE
     Dosage: UNK
  2. FLUCONAZOLE [Interacting]
     Active Substance: FLUCONAZOLE
     Dosage: UNK

REACTIONS (2)
  - Drug interaction [Unknown]
  - Labelled drug-drug interaction medication error [Unknown]
